FAERS Safety Report 9249992 (Version 1)
Quarter: 2013Q2

REPORT INFORMATION
  Report Type: Report from Study
  Country: JP (occurrence: JP)
  Receive Date: 20130424
  Receipt Date: 20130424
  Transmission Date: 20140414
  Serious: Yes (Life-Threatening)
  Sender: FDA-Public Use
  Company Number: JP-ROCHE-1216995

PATIENT
  Age: 63 Year
  Sex: Male
  Weight: 65 kg

DRUGS (6)
  1. ALTEPLASE [Suspect]
     Indication: THROMBOTIC CEREBRAL INFARCTION
     Route: 042
     Dates: start: 20120409, end: 20120409
  2. EDARAVONE [Suspect]
     Indication: THROMBOTIC CEREBRAL INFARCTION
     Route: 042
     Dates: start: 20120409, end: 20120422
  3. OZAGREL SODIUM [Concomitant]
     Route: 065
     Dates: start: 20120410, end: 20120423
  4. INSULIN [Concomitant]
     Route: 065
  5. CILOSTAZOL [Concomitant]
     Route: 048
     Dates: start: 20120423
  6. CLOPIDOGREL BISULFATE [Concomitant]
     Route: 065
     Dates: start: 20120423

REACTIONS (3)
  - Pneumonia [Recovered/Resolved]
  - Liver disorder [Recovering/Resolving]
  - Anaemia [Recovering/Resolving]
